FAERS Safety Report 8510733-3 (Version None)
Quarter: 2012Q3

REPORT INFORMATION
  Report Type: 
  Country: None (occurrence: None)
  Receive Date: 20120716
  Receipt Date: 20120710
  Transmission Date: 20120928
  Serious: No
  Sender: FDA-Public Use
  Company Number: US-PFIZER INC-2012166961

PATIENT
  Sex: Female
  Weight: 48.98 kg

DRUGS (5)
  1. VITAMIN B-12 [Concomitant]
     Dosage: UNK
  2. LYRICA [Suspect]
     Indication: FIBROMYALGIA
     Dosage: 75 MG, 2X/DAY
     Route: 048
     Dates: start: 20080101
  3. TRAMADOL [Concomitant]
     Dosage: UNK
  4. LYRICA [Suspect]
     Dosage: 120 MG, DAILY
     Route: 048
  5. PREVACID [Concomitant]
     Dosage: UNK

REACTIONS (3)
  - FATIGUE [None]
  - DRY MOUTH [None]
  - DIZZINESS [None]
